FAERS Safety Report 6883756-8 (Version None)
Quarter: 2010Q3

REPORT INFORMATION
  Report Type: 
  Country: None (occurrence: None)
  Receive Date: 20100729
  Receipt Date: 20100722
  Transmission Date: 20110219
  Serious: Yes (Hospitalization)
  Sender: FDA-Public Use
  Company Number: B0666610A

PATIENT
  Sex: Male

DRUGS (3)
  1. REQUIP [Suspect]
     Indication: PARKINSON'S DISEASE
     Dosage: 20MG PER DAY
     Route: 048
  2. STALEVO 100 [Suspect]
     Indication: PARKINSON'S DISEASE
     Dosage: 150MG FOUR TIMES PER DAY
     Route: 048
  3. SINEMET CR [Suspect]
     Indication: PARKINSON'S DISEASE
     Dosage: 200MG PER DAY
     Route: 048

REACTIONS (6)
  - HYPOTONIA [None]
  - LOSS OF CONSCIOUSNESS [None]
  - MALAISE [None]
  - ORTHOSTATIC HYPOTENSION [None]
  - POSTICTAL STATE [None]
  - SUDDEN ONSET OF SLEEP [None]
